FAERS Safety Report 18573022 (Version 1)
Quarter: 2020Q4

REPORT INFORMATION
  Report Type: Spontaneous
  Country: US (occurrence: US)
  Receive Date: 20201203
  Receipt Date: 20201203
  Transmission Date: 20210114
  Serious: No
  Sender: FDA-Public Use
  Company Number: US-ALLERGAN-2011498US

PATIENT

DRUGS (1)
  1. DALVANCE [Suspect]
     Active Substance: DALBAVANCIN
     Indication: OSTEOMYELITIS CHRONIC
     Dosage: 1 G, SINGLE, EVERY 3 WEEKS
     Route: 065
     Dates: start: 201903

REACTIONS (1)
  - Off label use [Unknown]
